FAERS Safety Report 5030426-7 (Version None)
Quarter: 2006Q2

REPORT INFORMATION
  Report Type: 
  Country: None (occurrence: None)
  Receive Date: 20060615
  Receipt Date: 20060605
  Transmission Date: 20061013
  Serious: Yes (Other)
  Sender: FDA-Public Use
  Company Number: 2006072431

PATIENT
  Age: 55 Year
  Sex: Female

DRUGS (3)
  1. POLYSPORIN OINTMENT [Suspect]
     Indication: SKIN LESION
     Dosage: TOPICAL
     Route: 061
  2. LIDOCAINE [Suspect]
  3. BOTULINUM TOXIN TYPE A (BOTULINUM TOXIN TYPE A) [Suspect]
     Dosage: INTRADERMAL
     Route: 023

REACTIONS (1)
  - ANAPHYLACTIC REACTION [None]
